FAERS Safety Report 16096929 (Version 5)
Quarter: 2020Q3

REPORT INFORMATION
  Report Type: Spontaneous
  Country: IN (occurrence: IN)
  Receive Date: 20190320
  Receipt Date: 20200915
  Transmission Date: 20201102
  Serious: Yes (Other)
  Sender: FDA-Public Use
  Company Number: IN-PFIZER INC-2017531750

PATIENT
  Age: 66 Year
  Sex: Female

DRUGS (8)
  1. EVEROLIMUS. [Suspect]
     Active Substance: EVEROLIMUS
     Dosage: UNK
  2. AROMASIN [Suspect]
     Active Substance: EXEMESTANE
     Dosage: 25 MG
     Route: 048
     Dates: start: 20190827
  3. LUMIA 60K [Concomitant]
     Dosage: 60000 IU, MONTHLY (ONCE A MONTH FOR 6 MONTHS)
  4. AROMASIN [Suspect]
     Active Substance: EXEMESTANE
     Indication: BREAST CANCER METASTATIC
     Dosage: 25 MG
     Route: 048
     Dates: start: 20150315
  5. LUMIA 60K [Concomitant]
     Dosage: 60000 IU, WEEKLY (ONCE A WEEK FOR 6 WEEKS)
  6. AROMASIN [Suspect]
     Active Substance: EXEMESTANE
     Dosage: 25 MG, 1X/DAY
     Route: 048
     Dates: start: 20170511
  7. SHELCAL [Concomitant]
     Active Substance: CALCIUM CARBONATE\CHOLECALCIFEROL
     Dosage: 500 MG, 2X/DAY
  8. SHELCAL [Concomitant]
     Active Substance: CALCIUM CARBONATE\CHOLECALCIFEROL
     Dosage: 500 MG, 1X/DAY

REACTIONS (7)
  - Mouth ulceration [Unknown]
  - Cholangiocarcinoma [Unknown]
  - Cholelithiasis [Unknown]
  - Weight decreased [Unknown]
  - Second primary malignancy [Unknown]
  - Decreased appetite [Unknown]
  - Jaundice [Unknown]
